FAERS Safety Report 9670027 (Version 1)
Quarter: 2013Q4

REPORT INFORMATION
  Report Type: Spontaneous
  Country: FR (occurrence: FR)
  Receive Date: 20131105
  Receipt Date: 20131105
  Transmission Date: 20140711
  Serious: Yes (Hospitalization)
  Sender: FDA-Public Use
  Company Number: FR-PFIZER INC-2013310073

PATIENT
  Age: 62 Year
  Sex: Male

DRUGS (14)
  1. VANCOMYCINE [Suspect]
     Dosage: UNK
     Dates: start: 20100817, end: 20100831
  2. DALACINE [Suspect]
     Dosage: 300 MG, 8X/DAY
     Route: 048
     Dates: start: 20100813, end: 20100817
  3. RIFADINE [Suspect]
     Dosage: UNK
     Route: 042
     Dates: start: 20100827, end: 20100830
  4. LOVENOX [Suspect]
     Dosage: 4000 IU, 1X/DAY
     Route: 058
     Dates: start: 20100829, end: 20100830
  5. ALLOPURINOL [Concomitant]
     Dosage: UNK
  6. AVANDIA [Concomitant]
     Dosage: UNK
  7. AMLOR [Concomitant]
     Dosage: UNK
  8. CONTRAMAL [Concomitant]
     Dosage: UNK
  9. DAFALGAN [Concomitant]
     Dosage: UNK
  10. ESIDREX [Concomitant]
     Dosage: UNK
  11. INEXIUM /01479302/ [Concomitant]
     Dosage: UNK
  12. LYRICA [Concomitant]
     Dosage: UNK
  13. TAREG [Concomitant]
     Dosage: UNK
  14. OFLOCET [Concomitant]
     Dosage: UNK
     Dates: start: 20100813, end: 20100817

REACTIONS (2)
  - Linear IgA disease [Recovered/Resolved]
  - Thrombocytopenia [Recovered/Resolved]
